FAERS Safety Report 18197499 (Version 1)
Quarter: 2020Q3

REPORT INFORMATION
  Report Type: Spontaneous
  Country: DE (occurrence: DE)
  Receive Date: 20200826
  Receipt Date: 20200826
  Transmission Date: 20201103
  Serious: Yes (Other)
  Sender: FDA-Public Use
  Company Number: DE-TORRENT-00018274

PATIENT
  Sex: Female
  Weight: 69 kg

DRUGS (1)
  1. LEVETIRACETAM HEUMANN 500 MG FILMTABLETTEN (INN:LEVETIRACETAM) [Suspect]
     Active Substance: LEVETIRACETAM
     Indication: EPILEPSY
     Dosage: 2X1
     Route: 048
     Dates: start: 201408

REACTIONS (4)
  - Fatigue [Not Recovered/Not Resolved]
  - Haemangioma of liver [Not Recovered/Not Resolved]
  - Hepatic pain [Not Recovered/Not Resolved]
  - Therapeutic product effect incomplete [Unknown]

NARRATIVE: CASE EVENT DATE: 201408
